FAERS Safety Report 14700066 (Version 7)
Quarter: 2019Q3

REPORT INFORMATION
  Report Type: Spontaneous
  Country: US (occurrence: US)
  Receive Date: 20180330
  Receipt Date: 20190716
  Transmission Date: 20191004
  Serious: Yes (Hospitalization, Other)
  Sender: FDA-Public Use
  Company Number: US-PFIZER INC-2018128793

PATIENT
  Age: 79 Year
  Sex: Female
  Weight: 84.35 kg

DRUGS (2)
  1. IBRANCE [Suspect]
     Active Substance: PALBOCICLIB
     Indication: BREAST CANCER METASTATIC
     Dosage: 125 MG, CYCLIC(D1-21 Q 28 DAYS)
     Route: 048
     Dates: start: 20180307, end: 20180321
  2. IBRANCE [Suspect]
     Active Substance: PALBOCICLIB
     Dosage: 100 MG, CYCLIC [DAILY FOR 21 DYAS THEN 7 DAYS OFF]
     Route: 048

REACTIONS (13)
  - Fall [Unknown]
  - Increased appetite [Unknown]
  - Asthenia [Unknown]
  - Feeling abnormal [Unknown]
  - Gait inability [Unknown]
  - Malaise [Unknown]
  - Cerebrovascular accident [Unknown]
  - Fatigue [Unknown]
  - Arthralgia [Unknown]
  - Myalgia [Unknown]
  - Urinary tract infection [Unknown]
  - Stomatitis [Recovering/Resolving]
  - Contusion [Unknown]

NARRATIVE: CASE EVENT DATE: 20180531
